FAERS Safety Report 6337437-X (Version None)
Quarter: 2009Q3

REPORT INFORMATION
  Report Type: 
  Country: None (occurrence: None)
  Receive Date: 20090902
  Receipt Date: 20070831
  Transmission Date: 20100115
  Serious: Yes (Other)
  Sender: FDA-Public Use
  Company Number: US-ASTRAZENECA-2006UW08383

PATIENT
  Sex: Male
  Weight: 108 kg

DRUGS (12)
  1. SEROQUEL [Suspect]
     Indication: ANXIETY
     Route: 048
     Dates: start: 20040101
  2. SEROQUEL [Suspect]
     Indication: DEPRESSION
     Route: 048
     Dates: start: 20040101
  3. SEROQUEL [Suspect]
     Indication: SCHIZOPHRENIA
     Route: 048
     Dates: start: 20040101
  4. SEROQUEL [Suspect]
     Dosage: 100-200 MG
     Route: 048
     Dates: start: 20051206
  5. SEROQUEL [Suspect]
     Dosage: 100-200 MG
     Route: 048
     Dates: start: 20051206
  6. SEROQUEL [Suspect]
     Dosage: 100-200 MG
     Route: 048
     Dates: start: 20051206
  7. ABILIFY [Concomitant]
  8. GEODON [Concomitant]
  9. CELEBREX [Concomitant]
     Indication: OSTEOARTHRITIS
     Dosage: 400-800 MG
     Route: 047
     Dates: start: 20030717
  10. ASPIRIN [Concomitant]
     Route: 048
     Dates: start: 20050128
  11. LIPITOR [Concomitant]
     Route: 048
     Dates: start: 20050128
  12. PERCOCET [Concomitant]
     Indication: ARTHRALGIA
     Dosage: 10/325 MG 4-6 HOURLY
     Route: 048
     Dates: start: 20040801

REACTIONS (2)
  - DIABETES MELLITUS [None]
  - KNEE OPERATION [None]
